FAERS Safety Report 9847860 (Version 1)
Quarter: 2014Q1

REPORT INFORMATION
  Report Type: Spontaneous
  Country: PH (occurrence: PH)
  Receive Date: 20140128
  Receipt Date: 20140128
  Transmission Date: 20141002
  Serious: Yes (Death, Disabling)
  Sender: FDA-Public Use
  Company Number: PH-009507513-1401PHL009628

PATIENT
  Age: 79 Year
  Sex: Male

DRUGS (1)
  1. JANUMET [Suspect]
     Dosage: ONE TABLET, QD
     Dates: start: 20121030

REACTIONS (4)
  - Adverse event [Fatal]
  - Dialysis [Unknown]
  - Inappropriate schedule of drug administration [Unknown]
  - Drug administration error [Unknown]
